FAERS Safety Report 10199135 (Version 2)
Quarter: 2014Q2

REPORT INFORMATION
  Report Type: Report from Study
  Country: CA (occurrence: CA)
  Receive Date: 20140527
  Receipt Date: 20140527
  Transmission Date: 20141212
  Serious: Yes (Death, Hospitalization, Other)
  Sender: FDA-Public Use
  Company Number: CA-ABBVIE-14K-028-1213910-00

PATIENT
  Age: 78 Year
  Sex: Male
  Weight: 78.09 kg

DRUGS (1)
  1. LUPRON DEPOT [Suspect]
     Indication: PROSTATE CANCER
     Dates: start: 20071123

REACTIONS (4)
  - Dysphagia [Fatal]
  - Foreign body aspiration [Fatal]
  - Pneumonia [Fatal]
  - Hip fracture [Unknown]
